FAERS Safety Report 20436293 (Version 1)
Quarter: 2022Q1

REPORT INFORMATION
  Report Type: Spontaneous
  Country: FR (occurrence: FR)
  Receive Date: 20220207
  Receipt Date: 20220207
  Transmission Date: 20220424
  Serious: Yes (Other)
  Sender: FDA-Public Use
  Company Number: None

PATIENT
  Age: 67 Year
  Sex: Female

DRUGS (3)
  1. CISATRACURIUM [Suspect]
     Active Substance: CISATRACURIUM
     Indication: Allergy test
     Route: 023
     Dates: start: 20210630
  2. MIVACURIUM [Suspect]
     Active Substance: MIVACURIUM
     Indication: Allergy test
     Route: 023
     Dates: start: 20210630
  3. ATRACURIUM [Suspect]
     Active Substance: ATRACURIUM
     Indication: Allergy test
     Route: 023
     Dates: start: 20210630

REACTIONS (3)
  - Allergy test positive [Recovered/Resolved]
  - Off label use [Unknown]
  - Condition aggravated [Recovered/Resolved]

NARRATIVE: CASE EVENT DATE: 20210630
